FAERS Safety Report 22605497 (Version 1)
Quarter: 2023Q2

REPORT INFORMATION
  Report Type: Spontaneous
  Country: US (occurrence: None)
  Receive Date: 20230614
  Receipt Date: 20230614
  Transmission Date: 20230722
  Serious: No
  Sender: FDA-Public Use
  Company Number: None

PATIENT
  Sex: Male

DRUGS (1)
  1. HUMIRA [Suspect]
     Active Substance: ADALIMUMAB
     Indication: Hidradenitis
     Dosage: OTHER FREQUENCY : EVERY14DAYS;?
     Route: 042
     Dates: start: 202304

REACTIONS (3)
  - Hidradenitis [None]
  - Condition aggravated [None]
  - Therapeutic product effect decreased [None]
